FAERS Safety Report 21557434 (Version 1)
Quarter: 2022Q4

REPORT INFORMATION
  Report Type: Spontaneous
  Country: CN (occurrence: CN)
  Receive Date: 20221105
  Receipt Date: 20221105
  Transmission Date: 20230112
  Serious: Yes (Hospitalization)
  Sender: FDA-Public Use
  Company Number: CN-002147023-NVSC2022CN248991

PATIENT
  Age: 65 Year
  Sex: Female
  Weight: 55 kg

DRUGS (2)
  1. DIOVAN [Suspect]
     Active Substance: VALSARTAN
     Indication: Hypertension
     Dosage: 80 MG, QD (ONE TABLET EACH IN THE MORNING)
     Route: 048
     Dates: start: 20220920, end: 20220927
  2. TELMISARTAN [Concomitant]
     Active Substance: TELMISARTAN
     Indication: Hypertension
     Dosage: 40 MG, QD (ONE TABLET EACH IN THE MORNING)
     Route: 048
     Dates: start: 20220920, end: 20220929

REACTIONS (3)
  - Chest pain [Recovered/Resolved]
  - Insomnia [Recovered/Resolved]
  - Back pain [Recovered/Resolved]

NARRATIVE: CASE EVENT DATE: 20220923
